FAERS Safety Report 7280378-4 (Version None)
Quarter: 2011Q1

REPORT INFORMATION
  Report Type: 
  Country: None (occurrence: None)
  Receive Date: 20110208
  Receipt Date: 20110127
  Transmission Date: 20110831
  Serious: Yes (Other)
  Sender: FDA-Public Use
  Company Number: US-ELI_LILLY_AND_COMPANY-US201101007240

PATIENT
  Sex: Male

DRUGS (7)
  1. HUMALOG MIX 75/25 [Suspect]
     Dosage: 25 U, OTHER
  2. HUMALOG MIX 50/50 [Suspect]
     Indication: TYPE 1 DIABETES MELLITUS
     Dosage: 25 U, EACH MORNING
  3. HUMALOG [Suspect]
     Dosage: 20 U, OTHER
     Dates: start: 20110128, end: 20110128
  4. HUMALOG MIX 75/25 [Suspect]
     Indication: TYPE 1 DIABETES MELLITUS
     Dosage: 20 U, EACH EVENING
  5. HUMALOG [Suspect]
     Indication: TYPE 1 DIABETES MELLITUS
     Dosage: 10 U, EACH MORNING
  6. HUMALOG MIX 50/50 [Suspect]
     Dosage: 6 U, EACH EVENING
  7. HUMALOG [Suspect]
     Dosage: 10 U, EACH EVENING

REACTIONS (4)
  - BLOOD GLUCOSE INCREASED [None]
  - TREMOR [None]
  - BLOOD GLUCOSE DECREASED [None]
  - LOSS OF CONSCIOUSNESS [None]
